FAERS Safety Report 10946539 (Version 1)
Quarter: 2015Q1

REPORT INFORMATION
  Report Type: Spontaneous
  Country: US (occurrence: None)
  Receive Date: 20150212
  Receipt Date: 20150212
  Transmission Date: 20150721
  Serious: Yes (Hospitalization)
  Sender: FDA-Public Use
  Company Number: TPA2012A04379

PATIENT
  Age: 65 Year
  Sex: Female
  Weight: 122.02 kg

DRUGS (5)
  1. BENICAR [Concomitant]
     Active Substance: OLMESARTAN MEDOXOMIL
  2. DETROL-LA (TOLTERODINE L-TARTRATE) [Concomitant]
  3. ZIAC (HYDROCHLOROTHIAZIDE, BISOPROLOL FUMARATE) [Concomitant]
  4. ULORIC [Suspect]
     Active Substance: FEBUXOSTAT
     Indication: HYPERURICAEMIA
     Route: 048
     Dates: start: 20120326, end: 20120514
  5. TRILIPIX [Concomitant]
     Active Substance: FENOFIBRIC ACID

REACTIONS (2)
  - Pancreatitis [None]
  - Acute kidney injury [None]

NARRATIVE: CASE EVENT DATE: 20120514
